FAERS Safety Report 6022099-1 (Version None)
Quarter: 2008Q4

REPORT INFORMATION
  Report Type: 
  Country: None (occurrence: None)
  Receive Date: 20081229
  Receipt Date: 20081223
  Transmission Date: 20090506
  Serious: Yes (Death)
  Sender: FDA-Public Use
  Company Number: US-ASTRAZENECA-2008AC03312

PATIENT
  Age: 47 Year
  Sex: Female

DRUGS (8)
  1. QUETIAPINE [Suspect]
     Route: 048
  2. MIRTAZAPINE [Suspect]
     Route: 048
  3. TRAZODONE [Suspect]
     Route: 048
  4. GABAPENTIN [Suspect]
     Route: 048
  5. TOPIRAMATE [Suspect]
     Route: 048
  6. HYDROXYZINE [Suspect]
     Route: 048
  7. LEVOTHYROXINE [Suspect]
     Route: 048
  8. EZETIMIBE [Suspect]
     Route: 048

REACTIONS (1)
  - COMPLETED SUICIDE [None]
